FAERS Safety Report 13372888 (Version 1)
Quarter: 2017Q1

REPORT INFORMATION
  Report Type: Spontaneous
  Country: US (occurrence: US)
  Receive Date: 20170327
  Receipt Date: 20170327
  Transmission Date: 20170429
  Serious: No
  Sender: FDA-Public Use
  Company Number: US-INTERPRAG-PM-OCA2017-00150

PATIENT

DRUGS (7)
  1. LEVOTHYROXIN [Concomitant]
     Active Substance: LEVOTHYROXINE
  2. FLUCONAZOLE. [Concomitant]
     Active Substance: FLUCONAZOLE
  3. PENICILLIN                         /00000901/ [Concomitant]
     Active Substance: PENICILLIN G
  4. DEXAMETHASONE. [Concomitant]
     Active Substance: DEXAMETHASONE
  5. OCALIVA [Suspect]
     Active Substance: OBETICHOLIC ACID
     Dosage: 5 MG, QD
     Route: 048
     Dates: start: 20170131
  6. LORAZEPAM. [Concomitant]
     Active Substance: LORAZEPAM
  7. OCALIVA [Suspect]
     Active Substance: OBETICHOLIC ACID
     Indication: BILIARY CIRRHOSIS PRIMARY
     Dosage: 2.5 MG, BID
     Route: 048
     Dates: start: 201702

REACTIONS (5)
  - Musculoskeletal stiffness [Unknown]
  - Intentional product misuse [Unknown]
  - Wrong technique in product usage process [Unknown]
  - Hypoaesthesia [Unknown]
  - Paraesthesia [Unknown]
